FAERS Safety Report 15315383 (Version 1)
Quarter: 2018Q3

REPORT INFORMATION
  Report Type: Spontaneous
  Country: US (occurrence: US)
  Receive Date: 20180815
  Receipt Date: 20180815
  Transmission Date: 20181010
  Serious: Yes (Other)
  Sender: FDA-Public Use
  Company Number: None

PATIENT
  Sex: Female
  Weight: 70.2 kg

DRUGS (10)
  1. ONDANSETRON [Concomitant]
     Active Substance: ONDANSETRON
  2. ELIQUIS [Concomitant]
     Active Substance: APIXABAN
  3. LISINOPRIL?HCTZ [Concomitant]
     Active Substance: HYDROCHLOROTHIAZIDE\LISINOPRIL
  4. NEXIUM [Concomitant]
     Active Substance: ESOMEPRAZOLE MAGNESIUM
  5. DICLOFENAC [Concomitant]
     Active Substance: DICLOFENAC
  6. LIDOCAINE?PRILOCAINE [Concomitant]
     Active Substance: LIDOCAINE\PRILOCAINE
  7. CAPECITABINE. [Suspect]
     Active Substance: CAPECITABINE
     Indication: BREAST CANCER
     Route: 048
     Dates: start: 20180319
  8. LETROZOLE. [Concomitant]
     Active Substance: LETROZOLE
  9. CAPECITABINE. [Suspect]
     Active Substance: CAPECITABINE
     Indication: COLON CANCER
     Route: 048
     Dates: start: 20180319
  10. LATANOPROST. [Concomitant]
     Active Substance: LATANOPROST

REACTIONS (7)
  - Decreased appetite [None]
  - Asthenia [None]
  - Fall [None]
  - Skin exfoliation [None]
  - Dermatitis contact [None]
  - Peripheral swelling [None]
  - Flatulence [None]
